FAERS Safety Report 14154780 (Version 1)
Quarter: 2017Q4

REPORT INFORMATION
  Report Type: Spontaneous
  Country: US (occurrence: US)
  Receive Date: 20171102
  Receipt Date: 20171102
  Transmission Date: 20180321
  Serious: Yes (Other)
  Sender: FDA-Public Use
  Company Number: None

PATIENT
  Age: 73 Year
  Sex: Male
  Weight: 105.12 kg

DRUGS (4)
  1. PREDNISONE. [Concomitant]
     Active Substance: PREDNISONE
  2. TAMSULOSIN [Concomitant]
     Active Substance: TAMSULOSIN
  3. ZYTIGA [Suspect]
     Active Substance: ABIRATERONE ACETATE
     Indication: PROSTATE CANCER
     Route: 048
     Dates: start: 20170814, end: 20171102
  4. FINASTERIDE. [Concomitant]
     Active Substance: FINASTERIDE

REACTIONS (1)
  - Disease progression [None]
